FAERS Safety Report 7537880-7 (Version None)
Quarter: 2011Q2

REPORT INFORMATION
  Report Type: 
  Country: None (occurrence: None)
  Receive Date: 20110609
  Receipt Date: 20110524
  Transmission Date: 20111010
  Serious: No
  Sender: FDA-Public Use
  Company Number: US-B.I. PHARMACEUTICALS,INC./RIDGEFIELD-2011-BP-03545BP

PATIENT
  Sex: Female
  Weight: 48.9 kg

DRUGS (15)
  1. PRADAXA [Suspect]
     Indication: ATRIAL FIBRILLATION
     Dosage: 300 MG
     Route: 048
     Dates: start: 20110118
  2. POTASSIUM CHLORIDE [Concomitant]
     Indication: SUPPLEMENTATION THERAPY
     Dosage: 10 MEQ
     Route: 048
  3. STRESSTAB [Concomitant]
     Indication: PROPHYLAXIS
     Route: 048
  4. LORAZEPAM [Concomitant]
     Indication: INSOMNIA
     Dosage: 0.5 MG
     Route: 048
  5. MAGNESIUM SULFATE [Concomitant]
  6. GABAPENTIN [Concomitant]
     Indication: BACK PAIN
     Route: 048
     Dates: start: 20101001
  7. METOPROLOL SUCCINATE [Concomitant]
     Indication: HYPERTENSION
     Dosage: 50 MG
     Route: 048
  8. LORAZEPAM [Concomitant]
     Indication: ANXIETY
  9. TOPROL-XL [Concomitant]
  10. POTASSIUM CHLORIDE [Concomitant]
  11. PROPAFENONE HCL [Concomitant]
     Indication: ATRIAL FIBRILLATION
     Dosage: 300 MG
     Route: 048
  12. HYDROCHLOROTHIAZIDE [Concomitant]
     Dosage: 12.5 MG
     Route: 048
  13. COUMADIN [Concomitant]
     Dates: start: 20080331, end: 20110116
  14. ASCORBIC ACID [Concomitant]
     Indication: PROPHYLAXIS
     Dosage: 250 MG
     Route: 048
  15. CALCIUM/VITAMIN D [Concomitant]
     Indication: PROPHYLAXIS
     Route: 048

REACTIONS (5)
  - FOREIGN BODY [None]
  - ABDOMINAL PAIN UPPER [None]
  - DECREASED APPETITE [None]
  - DYSPEPSIA [None]
  - NAUSEA [None]
